FAERS Safety Report 7809462-0 (Version None)
Quarter: 2011Q4

REPORT INFORMATION
  Report Type: 
  Country: None (occurrence: None)
  Receive Date: 20111012
  Receipt Date: 20110929
  Transmission Date: 20120403
  Serious: Yes (Other)
  Sender: FDA-Public Use
  Company Number: PHHY2011BR86837

PATIENT
  Sex: Female

DRUGS (1)
  1. EXFORGE [Suspect]
     Dosage: 2 DF,320 MG VALS AND 10 MG AMLO

REACTIONS (2)
  - RENAL DISORDER [None]
  - BRAIN NEOPLASM [None]
